FAERS Safety Report 5659365-5 (Version None)
Quarter: 2008Q1

REPORT INFORMATION
  Report Type: 
  Country: None (occurrence: None)
  Receive Date: 20080311
  Receipt Date: 20080226
  Transmission Date: 20080703
  Serious: Yes (Hospitalization)
  Sender: FDA-Public Use
  Company Number: GB-RANBAXY-2008RR-13383

PATIENT

DRUGS (1)
  1. SIMVASTATIN [Suspect]
     Dosage: 40 MG, UNK

REACTIONS (2)
  - LIVER ABSCESS [None]
  - PANCREATIC CARCINOMA [None]
